FAERS Safety Report 6255134-6 (Version None)
Quarter: 2009Q3

REPORT INFORMATION
  Report Type: 
  Country: None (occurrence: None)
  Receive Date: 20090702
  Receipt Date: 20090623
  Transmission Date: 20100115
  Serious: Yes (Other)
  Sender: FDA-Public Use
  Company Number: PHEH2009US06536

PATIENT
  Sex: Male

DRUGS (1)
  1. DIOVAN HCT [Suspect]

REACTIONS (2)
  - DIABETES MELLITUS [None]
  - HYPERTENSION [None]
